FAERS Safety Report 10682797 (Version 2)
Quarter: 2014Q4

REPORT INFORMATION
  Report Type: Report from Study
  Country: KR (occurrence: KR)
  Receive Date: 20141230
  Receipt Date: 20141230
  Transmission Date: 20150529
  Serious: Yes (Other)
  Sender: FDA-Public Use
  Company Number: KR-ABBVIE-14P-286-1318412-00

PATIENT
  Age: 5 Day
  Sex: Male

DRUGS (18)
  1. SYNAGIS [Suspect]
     Active Substance: PALIVIZUMAB
     Route: 030
     Dates: start: 20121129, end: 20121129
  2. ALPROSTADIL. [Concomitant]
     Active Substance: ALPROSTADIL
     Indication: CARDIAC DISORDER
     Route: 042
     Dates: start: 20121019, end: 20121029
  3. ASPIRIN. [Concomitant]
     Active Substance: ASPIRIN
     Indication: THROMBOSIS PROPHYLAXIS
     Route: 048
     Dates: start: 20121102, end: 20131122
  4. SYNAGIS [Suspect]
     Active Substance: PALIVIZUMAB
     Indication: PRODUCT USED FOR UNKNOWN INDICATION
     Route: 030
     Dates: start: 20130228, end: 20130228
  5. HAEMOPHILUS INFLUENZAE TYPE B OLIGOSACCHARIDE DIPHTHERIA CRM197 PROTEI [Concomitant]
     Indication: IMMUNISATION
     Route: 030
     Dates: start: 20130228, end: 20130228
  6. PNEUMOCOCCAL CONJUGATE VACCINE(7-VALENT) DIPHTHERIA CRM [Concomitant]
     Indication: IMMUNISATION
     Route: 030
     Dates: start: 20130228, end: 20130228
  7. SYNAGIS [Suspect]
     Active Substance: PALIVIZUMAB
     Route: 030
     Dates: start: 20130117, end: 20130117
  8. SYNAGIS [Suspect]
     Active Substance: PALIVIZUMAB
     Route: 030
     Dates: start: 20121023, end: 20121023
  9. DEXAMETHASONE SODIUM PHOSPHATE. [Concomitant]
     Active Substance: DEXAMETHASONE SODIUM PHOSPHATE
     Indication: EXTUBATION
     Route: 042
     Dates: start: 20121127, end: 20121129
  10. SYNAGIS [Suspect]
     Active Substance: PALIVIZUMAB
     Route: 030
     Dates: start: 20121220, end: 20121220
  11. CAPTOPRIL. [Concomitant]
     Active Substance: CAPTOPRIL
     Indication: CARDIAC DISORDER
     Route: 048
     Dates: start: 20121105, end: 20131122
  12. CHLORAL HYDRATE [Concomitant]
     Active Substance: CHLORAL HYDRATE
     Indication: SEDATION
     Route: 048
     Dates: start: 20130228, end: 20130228
  13. FUROSEMIDE. [Concomitant]
     Active Substance: FUROSEMIDE
     Indication: CARDIAC DISORDER
     Route: 048
     Dates: start: 20121108, end: 20130905
  14. SODIUM NITROPRUSSIDE [Concomitant]
     Active Substance: SODIUM NITROPRUSSIDE
     Indication: CARDIAC DISORDER
     Route: 042
     Dates: start: 20121029, end: 20121130
  15. AMIODARONE HCL (INJ) [Concomitant]
     Indication: ARRHYTHMIA
     Route: 042
     Dates: start: 20121029, end: 20121210
  16. SPIRONOLACTONE. [Concomitant]
     Active Substance: SPIRONOLACTONE
     Indication: CARDIAC DISORDER
     Route: 048
     Dates: start: 20121108, end: 20130905
  17. DIGOXIN. [Concomitant]
     Active Substance: DIGOXIN
     Indication: ARRHYTHMIA
     Route: 048
     Dates: start: 20121210, end: 20130327
  18. PROPRANOLOL HCL [Concomitant]
     Active Substance: PROPRANOLOL HYDROCHLORIDE
     Indication: ARRHYTHMIA
     Route: 048
     Dates: start: 20121105, end: 20130327

REACTIONS (1)
  - Arrhythmia [Recovered/Resolved]

NARRATIVE: CASE EVENT DATE: 20121023
